FAERS Safety Report 18883162 (Version 1)
Quarter: 2021Q1

REPORT INFORMATION
  Report Type: Spontaneous
  Country: DE (occurrence: DE)
  Receive Date: 20210212
  Receipt Date: 20210212
  Transmission Date: 20210420
  Serious: Yes (Hospitalization, Other)
  Sender: FDA-Public Use
  Company Number: DE-TEVA-2021-DE-1878261

PATIENT
  Age: 15 Year
  Sex: Male
  Weight: 63 kg

DRUGS (6)
  1. CERTICAN [Suspect]
     Active Substance: EVEROLIMUS
     Indication: RENAL TRANSPLANT
     Dosage: DAILY DOSE: 2 DF DOSAGE FORM EVERY DAYS 2 SEPARATED DOSES
     Route: 048
  2. SOLIRIS 900MG [Concomitant]
     Indication: ATYPICAL HAEMOLYTIC URAEMIC SYNDROME
     Dosage: DAILY DOSE: 600 MG MILLGRAM(S) EVERY 2 WEEKS
     Route: 042
  3. PREDNISON 2.5MG [Suspect]
     Active Substance: PREDNISONE
     Indication: RENAL TRANSPLANT
     Dosage: 1 DOSAGE FORMS DAILY;
     Route: 048
  4. BICANORM 1G [Concomitant]
     Indication: RENAL TUBULAR ACIDOSIS
     Dosage: 1 DOSAGE FORMS DAILY;
     Route: 048
  5. NAHCO3 5.85% L SUNG [Concomitant]
     Indication: RENAL TUBULAR ACIDOSIS
     Dosage: 20 ML
     Route: 048
  6. SANDIMMUN OPTORAL [Suspect]
     Active Substance: CYCLOSPORINE
     Indication: RENAL TRANSPLANT
     Dosage: DAILY DOSE: 250 MG MILLGRAM(S) EVERY DAYS 2 SEPARATED DOSES
     Route: 048

REACTIONS (2)
  - Pyrexia [Unknown]
  - Nephritis [Unknown]

NARRATIVE: CASE EVENT DATE: 20200210
